FAERS Safety Report 5659718-5 (Version None)
Quarter: 2008Q1

REPORT INFORMATION
  Report Type: 
  Country: None (occurrence: None)
  Receive Date: 20080311
  Receipt Date: 20070925
  Transmission Date: 20080703
  Serious: No
  Sender: FDA-Public Use
  Company Number: US-BAYER-200711871BCC

PATIENT
  Sex: Male
  Weight: 83 kg

DRUGS (9)
  1. ALEVE [Suspect]
     Indication: PAIN
     Dosage: UNIT DOSE: 220 MG
     Route: 048
  2. ALEVE [Suspect]
     Dosage: TOTAL DAILY DOSE: 220 MG  UNIT DOSE: 220 MG
     Route: 048
  3. VYTORIN [Concomitant]
  4. PROSCAR [Concomitant]
  5. RANITIDINE [Concomitant]
  6. SYNTHROID [Concomitant]
  7. IRON PILLS [Concomitant]
  8. FERROUS SULFATE TAB [Concomitant]
  9. ST. JOSEPH BABY ASPIRIN [Concomitant]

REACTIONS (6)
  - ARTHRALGIA [None]
  - BLISTER [None]
  - HYPERSENSITIVITY [None]
  - NAUSEA [None]
  - PRURITUS [None]
  - TENDON PAIN [None]
